FAERS Safety Report 10573133 (Version 1)
Quarter: 2014Q4

REPORT INFORMATION
  Report Type: Spontaneous
  Country: None (occurrence: None)
  Receive Date: 20141107
  Receipt Date: 20141107
  Transmission Date: 20150529
  Serious: Yes (Disabling)
  Sender: FDA-Public Use
  Company Number: None

PATIENT
  Age: 85 Year
  Sex: Female
  Weight: 54 kg

DRUGS (1)
  1. PROLIA [Suspect]
     Active Substance: DENOSUMAB
     Indication: OSTEOPOROSIS
     Route: 030
     Dates: start: 20140928

REACTIONS (6)
  - No therapeutic response [None]
  - Ear pain [None]
  - Unevaluable event [None]
  - Oropharyngeal pain [None]
  - Sinusitis [None]
  - Headache [None]

NARRATIVE: CASE EVENT DATE: 20140927
